FAERS Safety Report 18014353 (Version 1)
Quarter: 2020Q3

REPORT INFORMATION
  Report Type: Spontaneous
  Country: DE (occurrence: DE)
  Receive Date: 20200713
  Receipt Date: 20200713
  Transmission Date: 20201103
  Serious: Yes (Other)
  Sender: FDA-Public Use
  Company Number: DE-SHIRE-DE202021430

PATIENT

DRUGS (1)
  1. 476 (MESALAZINE/MESALAMINE) [Suspect]
     Active Substance: MESALAMINE
     Indication: COLITIS ULCERATIVE
     Dosage: 6000 [MG/D (BIS 2000 MG/D) ]/ UNTIL GW 12: 4G/D RECTALLY + 2 G/D ORALLY. AFTERWARDS 2 G/D RECTALLY.
     Route: 064
     Dates: start: 20190119, end: 20191017

REACTIONS (3)
  - Hydrocele [Unknown]
  - Foetal exposure during pregnancy [Unknown]
  - Small for dates baby [Recovering/Resolving]

NARRATIVE: CASE EVENT DATE: 20191017
